FAERS Safety Report 7305678-0 (Version None)
Quarter: 2011Q1

REPORT INFORMATION
  Report Type: 
  Country: None (occurrence: None)
  Receive Date: 20110222
  Receipt Date: 20110214
  Transmission Date: 20110831
  Serious: Yes (Hospitalization)
  Sender: FDA-Public Use
  Company Number: A0892642A

PATIENT
  Age: 57 Year
  Sex: Female

DRUGS (3)
  1. AVANDIA [Suspect]
     Indication: DIABETES MELLITUS
     Dosage: 8MG TWICE PER DAY
     Route: 048
     Dates: start: 20011024, end: 20021124
  2. AVANDARYL [Suspect]
     Route: 048
     Dates: start: 20060426, end: 20060524
  3. AVANDAMET [Suspect]
     Route: 048
     Dates: start: 20050222, end: 20080502

REACTIONS (2)
  - CARDIAC FAILURE CONGESTIVE [None]
  - RENAL FAILURE CHRONIC [None]
